FAERS Safety Report 7834189-9 (Version None)
Quarter: 2011Q4

REPORT INFORMATION
  Report Type: 
  Country: None (occurrence: None)
  Receive Date: 20111024
  Receipt Date: 20111014
  Transmission Date: 20120403
  Serious: Yes (Other)
  Sender: FDA-Public Use
  Company Number: PHHY2011MX91529

PATIENT
  Sex: Female

DRUGS (2)
  1. INDACATEROL [Concomitant]
     Dosage: DAILY
     Dates: start: 20110912
  2. DIOVAN [Suspect]
     Indication: HYPERTENSION
     Dosage: 1 TABLET (160 MG) PER DAY
     Dates: start: 20110720

REACTIONS (1)
  - BLOOD TRIGLYCERIDES INCREASED [None]
